FAERS Safety Report 10129256 (Version 1)
Quarter: 2014Q2

REPORT INFORMATION
  Report Type: Report from Study
  Country: US (occurrence: US)
  Receive Date: 20140428
  Receipt Date: 20140428
  Transmission Date: 20141212
  Serious: No
  Sender: FDA-Public Use
  Company Number: US-ABBVIE-14P-163-1208219-00

PATIENT
  Sex: Male
  Weight: 69.46 kg

DRUGS (1)
  1. ANDROGEL [Suspect]
     Indication: BLOOD TESTOSTERONE DECREASED
     Dates: start: 2012

REACTIONS (2)
  - Drug administered at inappropriate site [Unknown]
  - Application site irritation [Recovered/Resolved]
